FAERS Safety Report 24448433 (Version 3)
Quarter: 2025Q3

REPORT INFORMATION
  Report Type: Spontaneous
  Country: JP (occurrence: JP)
  Receive Date: 20241017
  Receipt Date: 20250810
  Transmission Date: 20251021
  Serious: Yes (Death, Other)
  Sender: ALEXION PHARMACEUTICALS
  Company Number: JP-ASTRAZENECA-240094877_064320_P_1

PATIENT
  Age: 45 Year
  Sex: Female

DRUGS (5)
  1. ONDEXXYA [Suspect]
     Active Substance: ANDEXANET ALFA
     Indication: Genital haemorrhage
  2. APIXABAN [Concomitant]
     Active Substance: APIXABAN
     Indication: Peripheral vein thrombosis
  3. APIXABAN [Concomitant]
     Active Substance: APIXABAN
     Indication: Peripheral vein thrombosis
     Route: 065
  4. APIXABAN [Concomitant]
     Active Substance: APIXABAN
  5. APIXABAN [Concomitant]
     Active Substance: APIXABAN

REACTIONS (2)
  - Ovarian cancer [Fatal]
  - Sarcoma [Fatal]
